FAERS Safety Report 10478607 (Version 12)
Quarter: 2015Q2

REPORT INFORMATION
  Report Type: Spontaneous
  Country: SE (occurrence: SE)
  Receive Date: 20140926
  Receipt Date: 20150424
  Transmission Date: 20150821
  Serious: Yes (Hospitalization, Other)
  Sender: FDA-Public Use
  Company Number: SE-JNJFOC-20140914972

PATIENT
  Age: 72 Year
  Sex: Male
  Weight: 74 kg

DRUGS (13)
  1. TRADOLAN [Suspect]
     Active Substance: TRAMADOL
     Indication: ARTHRALGIA
     Route: 048
     Dates: start: 2013
  2. STESOLID [Suspect]
     Active Substance: DIAZEPAM
     Indication: ANXIETY
     Dosage: ALSO REPORTED AS THREE TIMES A DAY
     Route: 048
     Dates: start: 2013
  3. SOVALDI [Suspect]
     Active Substance: SOFOSBUVIR
     Indication: HEPATITIS C
     Route: 048
     Dates: start: 20140904, end: 20140910
  4. TRADOLAN [Suspect]
     Active Substance: TRAMADOL
     Indication: BACK PAIN
     Route: 048
     Dates: start: 2013
  5. METOPROLOL [Concomitant]
     Active Substance: METOPROLOL
     Dosage: 1-0-0
     Dates: start: 2005
  6. ORALOVITE [Concomitant]
     Dosage: 1-0-0
     Dates: start: 2013
  7. OLYSIO [Suspect]
     Active Substance: SIMEPREVIR
     Indication: HEPATITIS C
     Route: 048
     Dates: start: 20140904, end: 20140910
  8. FELODIPINE. [Concomitant]
     Active Substance: FELODIPINE
     Dosage: 2-0-0
     Route: 065
  9. SOVALDI [Suspect]
     Active Substance: SOFOSBUVIR
     Indication: HEPATITIS C
     Route: 048
     Dates: start: 20140912
  10. STILNOCT [Suspect]
     Active Substance: ZOLPIDEM TARTRATE
     Indication: INSOMNIA
     Route: 048
     Dates: start: 2013
  11. FLUOXETINE [Concomitant]
     Active Substance: FLUOXETINE\FLUOXETINE HYDROCHLORIDE
     Indication: DEPRESSION
     Dosage: 2-0-0
     Dates: start: 2013
  12. OLYSIO [Suspect]
     Active Substance: SIMEPREVIR
     Indication: HEPATITIS C
     Route: 048
     Dates: start: 20140912
  13. ENALAPRIL [Concomitant]
     Active Substance: ENALAPRIL
     Dosage: 1-0-0
     Dates: start: 2005

REACTIONS (11)
  - Accidental overdose [Recovered/Resolved]
  - C-reactive protein increased [Recovered/Resolved]
  - Sinus bradycardia [Recovered/Resolved]
  - Blood bilirubin increased [Recovered/Resolved]
  - Disorientation [Recovered/Resolved]
  - Hypertension [Recovered/Resolved]
  - Aggression [Recovered/Resolved]
  - Electrocardiogram QT prolonged [Recovered/Resolved]
  - White blood cell count increased [Recovered/Resolved]
  - Confusional state [Recovered/Resolved]
  - Diarrhoea [Recovered/Resolved]

NARRATIVE: CASE EVENT DATE: 201409
